FAERS Safety Report 7577914-7 (Version None)
Quarter: 2011Q2

REPORT INFORMATION
  Report Type: 
  Country: None (occurrence: None)
  Receive Date: 20110628
  Receipt Date: 20110621
  Transmission Date: 20111010
  Serious: Yes (Other)
  Sender: FDA-Public Use
  Company Number: PHHY2011BR55065

PATIENT
  Age: 56 Year
  Sex: Female

DRUGS (1)
  1. FORMOTEROL FUMARATE [Suspect]
     Dosage: UNK UKN, UNK

REACTIONS (3)
  - COUGH [None]
  - DEVICE MALFUNCTION [None]
  - CHRONIC OBSTRUCTIVE PULMONARY DISEASE [None]
